FAERS Safety Report 18241379 (Version 1)
Quarter: 2020Q3

REPORT INFORMATION
  Report Type: Spontaneous
  Country: US (occurrence: US)
  Receive Date: 20200904
  Receipt Date: 20200904
  Transmission Date: 20201103
  Serious: Yes (Hospitalization)
  Sender: FDA-Public Use
  Company Number: None

PATIENT
  Age: 36 Year
  Sex: Female

DRUGS (1)
  1. MAKENA [Suspect]
     Active Substance: HYDROXYPROGESTERONE CAPROATE
     Indication: PREMATURE LABOUR
     Dosage: 275MG (1.1ML)  QWK  SQ ? 4.4ML FOR 28 D
     Route: 058

REACTIONS (2)
  - Induced labour [None]
  - Abortion spontaneous [None]

NARRATIVE: CASE EVENT DATE: 20200831
